FAERS Safety Report 6481136-0 (Version None)
Quarter: 2009Q4

REPORT INFORMATION
  Report Type: 
  Country: None (occurrence: None)
  Receive Date: 20091208
  Receipt Date: 20090310
  Transmission Date: 20100525
  Serious: No
  Sender: FDA-Public Use
  Company Number: US-AMGEN-KDL337787

PATIENT
  Sex: Female
  Weight: 109.9 kg

DRUGS (10)
  1. ENBREL [Suspect]
     Indication: RHEUMATOID ARTHRITIS
     Route: 058
     Dates: start: 20090123
  2. METHOTREXATE [Concomitant]
     Route: 048
  3. FOLIC ACID [Concomitant]
  4. DIOVAN HCT [Concomitant]
  5. METOPROLOL [Concomitant]
  6. ZETIA [Concomitant]
  7. LEXAPRO [Concomitant]
  8. ASPIRIN [Concomitant]
  9. PROSTIN E2 [Concomitant]
  10. PREDNISONE [Concomitant]

REACTIONS (6)
  - ARTHRALGIA [None]
  - COUGH [None]
  - JOINT STIFFNESS [None]
  - PAIN IN EXTREMITY [None]
  - PERIODONTAL DISEASE [None]
  - UPPER RESPIRATORY TRACT INFECTION [None]
